FAERS Safety Report 11986365 (Version 1)
Quarter: 2016Q1

REPORT INFORMATION
  Report Type: Spontaneous
  Country: US (occurrence: US)
  Receive Date: 20160202
  Receipt Date: 20160202
  Transmission Date: 20160526
  Serious: No
  Sender: FDA-Public Use
  Company Number: US-009507513-1601USA011822

PATIENT
  Sex: Female

DRUGS (1)
  1. DIFICID [Suspect]
     Active Substance: FIDAXOMICIN
     Dosage: THE PATIENT HAS BEEN ON THERAPY WITH DIFICID ON FOUR SEPARATE OCCASIONS (UNSPECIFIED DATES)
     Route: 048

REACTIONS (3)
  - Bladder catheterisation [Not Recovered/Not Resolved]
  - Urinary tract infection [Not Recovered/Not Resolved]
  - Discomfort [Not Recovered/Not Resolved]
